FAERS Safety Report 18701860 (Version 2)
Quarter: 2021Q1

REPORT INFORMATION
  Report Type: Report from Study
  Country: CN (occurrence: CN)
  Receive Date: 20210105
  Receipt Date: 20210318
  Transmission Date: 20210419
  Serious: Yes (Death, Other)
  Sender: FDA-Public Use
  Company Number: CN-PFIZER INC-2020521148

PATIENT

DRUGS (3)
  1. CARBOPLATIN. [Suspect]
     Active Substance: CARBOPLATIN
     Indication: OESOPHAGEAL SQUAMOUS CELL CARCINOMA
     Dosage: UNK, CYCLIC (AREA UNDER THE CURVE OF 2 MG PER MILLILITER PER MINUTE ON DAYS 1, 8, 15, 22 AND 29 (AUC
     Route: 042
  2. PEMBROLIZUMAB. [Suspect]
     Active Substance: PEMBROLIZUMAB
     Indication: OESOPHAGEAL SQUAMOUS CELL CARCINOMA
     Dosage: 2 MG/KG, CYCLIC (DAYS 1 AND 22)
     Route: 042
  3. PACLITAXEL. [Suspect]
     Active Substance: PACLITAXEL
     Indication: OESOPHAGEAL SQUAMOUS CELL CARCINOMA
     Dosage: 50 MG/M2, CYCLIC (DAYS 1, 8, 15, 22 AND 29) (ONCE A WEEK FOR 5 WEEK)
     Route: 042

REACTIONS (2)
  - Oesophageal haemorrhage [Fatal]
  - Leukopenia [Unknown]
